FAERS Safety Report 4451955-0 (Version None)
Quarter: 2004Q3

REPORT INFORMATION
  Report Type: 
  Country: None (occurrence: None)
  Receive Date: 20040913
  Receipt Date: 20040721
  Transmission Date: 20050211
  Serious: No
  Sender: FDA-Public Use
  Company Number: 2004-BP-05924BP(0)

PATIENT
  Age: 65 Year
  Sex: Female
  Weight: 78.9 kg

DRUGS (5)
  1. SPIRIVA [Suspect]
     Indication: CHRONIC OBSTRUCTIVE AIRWAYS DISEASE
     Dosage: 18 MCG (18 MCG), IH
     Route: 055
     Dates: start: 20040715, end: 20040720
  2. ALBUTEROL [Concomitant]
  3. PULMICORT [Concomitant]
  4. SINGULAIR [Concomitant]
  5. SEROVENT [Concomitant]

REACTIONS (1)
  - PRURITUS [None]
